FAERS Safety Report 5495658-2 (Version None)
Quarter: 2007Q4

REPORT INFORMATION
  Report Type: 
  Country: None (occurrence: None)
  Receive Date: 20071015
  Receipt Date: 20060913
  Transmission Date: 20080405
  Serious: Yes (Other)
  Sender: FDA-Public Use
  Company Number: S06-USA-03638-01

PATIENT
  Age: 82 Year
  Sex: Female

DRUGS (7)
  1. LEXAPRO [Suspect]
     Indication: ANXIETY
     Dosage: 10 MG QD PO
     Route: 048
     Dates: start: 20060701, end: 20060911
  2. LEXAPRO [Suspect]
     Indication: DEPRESSION
     Dosage: 10 MG QD PO
     Route: 048
     Dates: start: 20060701, end: 20060911
  3. NAMENDA [Suspect]
     Indication: INFARCTION
     Dosage: 10 MG BID PO
     Route: 048
     Dates: start: 20040101
  4. DAYQUIL (ACETAMINOPHEN/DEXTROMETHORPHAN/PSEUDOEPHEDRINE) [Suspect]
  5. SULAR [Concomitant]
  6. DIOVAN [Concomitant]
  7. ARICEPT [Concomitant]

REACTIONS (15)
  - AFFECT LABILITY [None]
  - AGGRESSION [None]
  - ANGER [None]
  - CONTUSION [None]
  - COUGH [None]
  - DRUG INTERACTION [None]
  - DYSPHAGIA [None]
  - HYPERHIDROSIS [None]
  - MENTAL IMPAIRMENT [None]
  - MUSCLE RIGIDITY [None]
  - PAIN IN EXTREMITY [None]
  - PANIC ATTACK [None]
  - PARANOIA [None]
  - SENSATION OF HEAVINESS [None]
  - SUICIDAL IDEATION [None]
